FAERS Safety Report 13212638 (Version 16)
Quarter: 2019Q2

REPORT INFORMATION
  Report Type: Report from Study
  Country: US (occurrence: US)
  Receive Date: 20170210
  Receipt Date: 20190430
  Transmission Date: 20190711
  Serious: Yes (Hospitalization, Other)
  Sender: FDA-Public Use
  Company Number: PHHY2016US181895

PATIENT
  Age: 37 Year
  Sex: Male
  Weight: 72.8 kg

DRUGS (208)
  1. TOBI [Suspect]
     Active Substance: TOBRAMYCIN
     Dosage: 300 OT, BID
     Route: 055
     Dates: start: 20161101, end: 20161129
  2. TOBI [Suspect]
     Active Substance: TOBRAMYCIN
     Dosage: 300 OT, BID
     Route: 055
     Dates: start: 20170305, end: 20170326
  3. CAYSTON [Suspect]
     Active Substance: AZTREONAM
     Dosage: 75 MG, BID
     Route: 055
     Dates: start: 20170930
  4. CAYSTON [Suspect]
     Active Substance: AZTREONAM
     Dosage: 75 MG, BID
     Route: 055
     Dates: start: 20171014, end: 20171111
  5. REGLAN [Concomitant]
     Active Substance: METOCLOPRAMIDE HYDROCHLORIDE
     Indication: IMPAIRED GASTRIC EMPTYING
     Dosage: 5 MG, TID
     Route: 048
     Dates: start: 2014
  6. OMEPRAZOLE. [Concomitant]
     Active Substance: OMEPRAZOLE
     Indication: GASTROOESOPHAGEAL REFLUX DISEASE
     Dosage: 40 MG, BID
     Route: 048
     Dates: start: 20150101
  7. TYLENOL [Concomitant]
     Active Substance: ACETAMINOPHEN
     Dosage: UNK
     Route: 065
     Dates: start: 20170327, end: 20170404
  8. VITAMIN D3 [Concomitant]
     Active Substance: CHOLECALCIFEROL
     Dosage: UNK
     Route: 065
     Dates: start: 20170619
  9. MEGESTROL [Concomitant]
     Active Substance: MEGESTROL
     Indication: DECREASED APPETITE
     Dosage: UNK
     Route: 065
     Dates: start: 20161028
  10. METOCLOPRAMIDE. [Concomitant]
     Active Substance: METOCLOPRAMIDE
     Indication: IMPAIRED GASTRIC EMPTYING
     Dosage: UNK
     Route: 065
     Dates: start: 20140101
  11. SODIUM CHLORIDE. [Concomitant]
     Active Substance: SODIUM CHLORIDE
     Dosage: 0.9 %, UNK
     Route: 065
     Dates: start: 20170712, end: 20170712
  12. ZITHROMAX [Concomitant]
     Active Substance: AZITHROMYCIN DIHYDRATE
     Indication: CYSTIC FIBROSIS LUNG
     Dosage: UNK
     Route: 065
     Dates: start: 20160531, end: 20160601
  13. LIDOCAINE. [Concomitant]
     Active Substance: LIDOCAINE
     Indication: BRONCHOSCOPY
     Dosage: 2 %, UNK
     Route: 065
     Dates: start: 20160531, end: 20160531
  14. LIDOCAINE. [Concomitant]
     Active Substance: LIDOCAINE
     Dosage: 4 %, UNK
     Route: 065
     Dates: start: 20170717, end: 20170717
  15. MERREM [Concomitant]
     Active Substance: MEROPENEM
     Indication: PROPHYLAXIS
     Dosage: UNK
     Route: 065
     Dates: start: 20160530, end: 20160603
  16. MERREM [Concomitant]
     Active Substance: MEROPENEM
     Dosage: UNK
     Route: 065
     Dates: start: 20170702, end: 20170720
  17. ROXICODONE [Concomitant]
     Active Substance: OXYCODONE HYDROCHLORIDE
     Indication: PAIN
     Dosage: UNK
     Dates: start: 20160602, end: 20160604
  18. COMPAZINE [Concomitant]
     Active Substance: PROCHLORPERAZINE MALEATE
     Indication: NAUSEA
     Dosage: UNK
     Route: 065
     Dates: start: 20160601, end: 20160604
  19. NEBCIN [Concomitant]
     Active Substance: TOBRAMYCIN SULFATE
     Dosage: UNK
     Route: 065
     Dates: start: 20170702, end: 20170720
  20. LACTOBACILLUS RHAMNOSUS [Concomitant]
     Active Substance: LACTOBACILLUS RHAMNOSUS
     Indication: PROBIOTIC THERAPY
     Dosage: UNK
     Route: 065
     Dates: start: 20161028, end: 20161102
  21. EMLA [Concomitant]
     Active Substance: LIDOCAINE\PRILOCAINE
     Indication: PAIN
     Dosage: UNK
     Route: 065
     Dates: start: 20161028, end: 20161102
  22. ZOFRAN [Concomitant]
     Active Substance: ONDANSETRON HYDROCHLORIDE
     Dosage: UNK
     Route: 065
     Dates: start: 20180228, end: 20180316
  23. ZOFRAN [Concomitant]
     Active Substance: ONDANSETRON HYDROCHLORIDE
     Dosage: UNK
     Dates: start: 20181227, end: 20190104
  24. TAMIFLU [Concomitant]
     Active Substance: OSELTAMIVIR PHOSPHATE
     Indication: INFLUENZA
     Dosage: UNK
     Route: 065
     Dates: start: 20161130, end: 20161201
  25. MAXIPIME [Concomitant]
     Active Substance: CEFEPIME HYDROCHLORIDE
     Indication: PSEUDOMONAS INFECTION
     Dosage: UNK
     Route: 065
     Dates: start: 20170328, end: 20170330
  26. ZITHROMYCIN [Concomitant]
     Active Substance: AZITHROMYCIN ANHYDROUS
     Indication: CYSTIC FIBROSIS LUNG
     Dosage: UNK
     Route: 065
     Dates: start: 20160617, end: 20160620
  27. ACETAMINOPHEN. [Concomitant]
     Active Substance: ACETAMINOPHEN
     Dosage: UNK
     Dates: start: 20180723, end: 20180727
  28. ACETAMINOPHEN. [Concomitant]
     Active Substance: ACETAMINOPHEN
     Dosage: UNK
     Route: 065
     Dates: start: 20180915, end: 20180924
  29. CEFEPIME [Suspect]
     Active Substance: CEFEPIME HYDROCHLORIDE
     Indication: PRODUCT USED FOR UNKNOWN INDICATION
     Dosage: 2 GM Q8H
     Route: 042
     Dates: start: 20170328, end: 20170330
  30. REGLAN [Concomitant]
     Active Substance: METOCLOPRAMIDE HYDROCHLORIDE
     Indication: NAUSEA
     Dosage: 5 MG, TID
     Route: 048
     Dates: start: 20171005
  31. COLISTIN [Concomitant]
     Active Substance: COLISTIN
     Indication: PRODUCT USED FOR UNKNOWN INDICATION
     Dosage: 75 MG, BID
     Route: 055
     Dates: start: 20171012, end: 20171013
  32. TYLENOL [Concomitant]
     Active Substance: ACETAMINOPHEN
     Dosage: UNK
     Route: 065
     Dates: start: 20170702, end: 20170720
  33. TYLENOL [Concomitant]
     Active Substance: ACETAMINOPHEN
     Dosage: UNK
     Route: 065
     Dates: start: 20181226, end: 20190104
  34. VITAMIN D3 [Concomitant]
     Active Substance: CHOLECALCIFEROL
     Dosage: UNK
     Route: 065
     Dates: start: 20180916, end: 20180924
  35. VITAMIN D3 [Concomitant]
     Active Substance: CHOLECALCIFEROL
     Dosage: UNK
     Route: 065
     Dates: start: 20181031, end: 20181102
  36. PULMOZYME [Concomitant]
     Active Substance: DORNASE ALFA
     Indication: COUGH
     Dosage: UNK
     Route: 065
     Dates: start: 20170717, end: 20170717
  37. PULMOZYME [Concomitant]
     Active Substance: DORNASE ALFA
     Dosage: UNK
     Route: 065
     Dates: start: 20171121, end: 20171204
  38. MULTIVITAMIN [Concomitant]
     Active Substance: VITAMINS
     Dosage: UNK
     Route: 065
     Dates: start: 20180916, end: 20180924
  39. SODIUM CHLORIDE. [Concomitant]
     Active Substance: SODIUM CHLORIDE
     Indication: CATHETER MANAGEMENT
     Dosage: 0.9 %, UNK
     Route: 065
     Dates: start: 20160530, end: 20160604
  40. SODIUM CHLORIDE. [Concomitant]
     Active Substance: SODIUM CHLORIDE
     Indication: BRONCHOSCOPY
     Dosage: 0.9 %, UNK
     Route: 065
     Dates: start: 20160615, end: 20160620
  41. SUBLIMAZE [Concomitant]
     Active Substance: FENTANYL CITRATE
     Indication: PROCEDURAL PAIN
     Dosage: UNK
     Route: 065
     Dates: start: 20160601, end: 20160601
  42. ISOVUE [Concomitant]
     Active Substance: IOPAMIDOL
     Dosage: UNK
     Route: 065
     Dates: start: 20160615, end: 20160615
  43. VITAMIN K1 [Concomitant]
     Active Substance: PHYTONADIONE
     Indication: THROMBOSIS
     Dosage: UNK
     Route: 065
     Dates: start: 20160531, end: 20160602
  44. FLEXERIL [Concomitant]
     Active Substance: CYCLOBENZAPRINE HYDROCHLORIDE
     Dosage: UNK
     Route: 065
     Dates: start: 20170702, end: 20170720
  45. MORPHINE [Concomitant]
     Active Substance: MORPHINE
     Dosage: UNK
     Route: 065
     Dates: start: 20170328, end: 20170329
  46. NEBCIN [Concomitant]
     Active Substance: TOBRAMYCIN SULFATE
     Dosage: UNK
     Route: 065
     Dates: start: 20170327, end: 20170404
  47. NEBCIN [Concomitant]
     Active Substance: TOBRAMYCIN SULFATE
     Dosage: UNK
     Route: 065
     Dates: start: 20170609, end: 20170619
  48. NEBCIN [Concomitant]
     Active Substance: TOBRAMYCIN SULFATE
     Dosage: UNK
     Route: 065
     Dates: start: 20180223, end: 20180315
  49. NEBCIN [Concomitant]
     Active Substance: TOBRAMYCIN SULFATE
     Dosage: UNK
     Route: 065
     Dates: start: 20180601, end: 20180605
  50. NEBCIN [Concomitant]
     Active Substance: TOBRAMYCIN SULFATE
     Dosage: UNK
     Route: 065
     Dates: start: 20181026, end: 20181102
  51. PERCOCET [Concomitant]
     Active Substance: ACETAMINOPHEN\OXYCODONE HYDROCHLORIDE
     Indication: PAIN
     Dosage: UNK
     Route: 065
     Dates: start: 20170704, end: 20170720
  52. CETIRIZINE [Concomitant]
     Active Substance: CETIRIZINE HYDROCHLORIDE
     Dosage: UNK
     Route: 065
     Dates: start: 20181227, end: 20190104
  53. TEZACAFTOR [Concomitant]
     Active Substance: TEZACAFTOR
     Indication: CYSTIC FIBROSIS
     Dosage: UNK
     Route: 065
     Dates: start: 20180611
  54. CAYSTON [Concomitant]
     Active Substance: AZTREONAM
     Indication: PSEUDOMONAS INFECTION
     Dosage: UNK
     Route: 065
     Dates: start: 20150101
  55. CAYSTON [Suspect]
     Active Substance: AZTREONAM
     Dosage: 75 MG, TID
     Route: 055
     Dates: start: 20160501, end: 20160530
  56. ALBUTEROL. [Concomitant]
     Active Substance: ALBUTEROL
     Indication: CYSTIC FIBROSIS LUNG
     Dosage: 2.5 MG, PRN
     Route: 055
     Dates: start: 20160120
  57. ALBUTEROL. [Concomitant]
     Active Substance: ALBUTEROL
     Dosage: UNK
     Route: 065
     Dates: start: 20180105
  58. ROBITUSSIN (GUAIFENESIN) [Concomitant]
     Active Substance: GUAIFENESIN
     Indication: CHRONIC SINUSITIS
     Dosage: UNK
     Route: 065
     Dates: start: 20150818
  59. SODIUM CHLORIDE. [Concomitant]
     Active Substance: SODIUM CHLORIDE
     Indication: CYSTIC FIBROSIS LUNG
     Dosage: 7 %, UNK
     Route: 065
     Dates: start: 20150101, end: 20170213
  60. SODIUM CHLORIDE. [Concomitant]
     Active Substance: SODIUM CHLORIDE
     Dosage: 0.9 %, UNK
     Route: 065
     Dates: start: 20160825, end: 20160902
  61. SODIUM CHLORIDE. [Concomitant]
     Active Substance: SODIUM CHLORIDE
     Dosage: 0.9 %, UNK
     Route: 065
     Dates: start: 20170609, end: 20170619
  62. SODIUM CHLORIDE. [Concomitant]
     Active Substance: SODIUM CHLORIDE
     Dosage: 0.9 %, UNK
     Route: 065
     Dates: start: 20170717, end: 20170717
  63. SODIUM CHLORIDE. [Concomitant]
     Active Substance: SODIUM CHLORIDE
     Dosage: 0.9 %, UNK
     Route: 065
     Dates: start: 20171006, end: 20171013
  64. ISOVUE [Concomitant]
     Active Substance: IOPAMIDOL
     Indication: SCAN WITH CONTRAST
     Dosage: UNK
     Route: 065
     Dates: start: 20160601, end: 20160601
  65. LIDOCAINE. [Concomitant]
     Active Substance: LIDOCAINE
     Dosage: 4 %, UNK
     Route: 065
     Dates: start: 20170712, end: 20170712
  66. MERREM [Concomitant]
     Active Substance: MEROPENEM
     Indication: PSEUDOMONAS INFECTION
     Dosage: UNK
     Route: 065
     Dates: start: 20160825, end: 20160902
  67. NEBCIN [Concomitant]
     Active Substance: TOBRAMYCIN SULFATE
     Dosage: UNK
     Route: 065
     Dates: start: 20171006, end: 20171013
  68. FORTAZ [Concomitant]
     Active Substance: CEFTAZIDIME SODIUM
     Indication: PSEUDOMONAS INFECTION
     Dosage: UNK
     Route: 065
     Dates: start: 20161028, end: 20161031
  69. HEPARIN [Concomitant]
     Active Substance: HEPARIN SODIUM
     Dosage: UNK
     Route: 065
     Dates: start: 20170109, end: 20170118
  70. AZACTAM [Concomitant]
     Active Substance: AZTREONAM
     Indication: PSEUDOMONAS INFECTION
     Dosage: UNK
     Route: 065
     Dates: start: 20161129, end: 20161208
  71. FLAGYL [Concomitant]
     Active Substance: METRONIDAZOLE\METRONIDAZOLE HYDROCHLORIDE
     Indication: BACTERIAL INFECTION
     Dosage: UNK
     Route: 065
     Dates: start: 20161129, end: 20161208
  72. HEPARIN PF NOVO [Concomitant]
     Dosage: UNK
     Route: 065
     Dates: start: 20170609, end: 20170619
  73. ATARAX [Concomitant]
     Active Substance: HYDROXYZINE HYDROCHLORIDE
     Indication: PRURITUS
     Dosage: UNK
     Route: 065
     Dates: start: 20170329, end: 20170330
  74. VITAMINE C [Concomitant]
     Active Substance: ASCORBIC ACID
     Indication: NUTRITIONAL SUPPLEMENTATION
     Dosage: UNK
     Route: 065
     Dates: start: 20190211
  75. METOCLOPRAMIDE. [Concomitant]
     Active Substance: METOCLOPRAMIDE
     Dosage: UNK
     Route: 065
     Dates: start: 20181026, end: 20181102
  76. MULTIVITAMIN [Concomitant]
     Active Substance: VITAMINS
     Indication: NUTRITIONAL SUPPLEMENTATION
     Dosage: UNK
     Route: 065
     Dates: start: 20140407, end: 20170619
  77. TRAZODONE [Concomitant]
     Active Substance: TRAZODONE HYDROCHLORIDE
     Indication: SLEEP DISORDER
     Dosage: UNK
     Route: 065
     Dates: start: 20140101, end: 20180125
  78. DUONEB [Concomitant]
     Active Substance: ALBUTEROL SULFATE\IPRATROPIUM BROMIDE
     Dosage: UNK
     Route: 065
     Dates: start: 20170109, end: 20170109
  79. ISOVUE [Concomitant]
     Active Substance: IOPAMIDOL
     Dosage: UNK
     Route: 065
     Dates: start: 20160616, end: 20160616
  80. ISOVUE [Concomitant]
     Active Substance: IOPAMIDOL
     Dosage: UNK
     Route: 065
     Dates: start: 20160619, end: 20160619
  81. MERREM [Concomitant]
     Active Substance: MEROPENEM
     Dosage: UNK
     Route: 065
     Dates: start: 20171121, end: 20171204
  82. MERREM [Concomitant]
     Active Substance: MEROPENEM
     Dosage: UNK
     Route: 065
     Dates: start: 20180529, end: 20180605
  83. VERSED [Concomitant]
     Active Substance: MIDAZOLAM HYDROCHLORIDE
     Indication: BRONCHOSCOPY
     Dosage: UNK
     Route: 065
     Dates: start: 20160615, end: 20160619
  84. VERSED [Concomitant]
     Active Substance: MIDAZOLAM HYDROCHLORIDE
     Dosage: UNK
     Route: 065
     Dates: start: 20170717, end: 20170717
  85. MYCOSTATIN [Concomitant]
     Active Substance: NYSTATIN
     Indication: ORAL CANDIDIASIS
     Dosage: UNK
     Route: 065
     Dates: start: 20160531, end: 20160604
  86. VITAMIN K1 [Concomitant]
     Active Substance: PHYTONADIONE
     Indication: NAUSEA
     Dosage: UNK
     Route: 065
     Dates: start: 20160619, end: 20160619
  87. VITAMIN K1 [Concomitant]
     Active Substance: PHYTONADIONE
     Dosage: UNK
     Route: 065
     Dates: start: 20170330, end: 20170330
  88. FLEXERIL [Concomitant]
     Active Substance: CYCLOBENZAPRINE HYDROCHLORIDE
     Indication: MUSCLE SPASMS
     Dosage: UNK
     Route: 065
     Dates: start: 20170609, end: 20170619
  89. PNEUMOVAX 23 [Concomitant]
     Active Substance: PNEUMOCOCCAL VACCINE, POLYVALENT 23
     Indication: PROPHYLAXIS
     Dosage: UNK
     Route: 065
     Dates: start: 20160619, end: 20160619
  90. CEPACOL [Concomitant]
     Active Substance: BENZOCAINE
     Indication: COUGH
     Dosage: UNK
     Route: 065
     Dates: start: 20160618, end: 20160620
  91. NEBCIN [Concomitant]
     Active Substance: TOBRAMYCIN SULFATE
     Dosage: UNK
     Route: 065
     Dates: start: 20170501, end: 20170515
  92. NEBCIN [Concomitant]
     Active Substance: TOBRAMYCIN SULFATE
     Dosage: UNK
     Route: 065
     Dates: start: 20180531, end: 20180531
  93. AZACTAM [Concomitant]
     Active Substance: AZTREONAM
     Indication: CYSTIC FIBROSIS LUNG
     Dosage: UNK
     Route: 065
     Dates: start: 20160109, end: 20160109
  94. AZACTAM [Concomitant]
     Active Substance: AZTREONAM
     Dosage: UNK
     Route: 065
     Dates: start: 20180223, end: 20180301
  95. ZOFRAN [Concomitant]
     Active Substance: ONDANSETRON HYDROCHLORIDE
     Indication: NAUSEA
     Dosage: UNK
     Route: 065
     Dates: start: 20161129, end: 20161208
  96. AZITHROMYCIN ANHYDROUS. [Concomitant]
     Active Substance: AZITHROMYCIN ANHYDROUS
     Indication: CYSTIC FIBROSIS LUNG
     Dosage: UNK
     Route: 065
     Dates: start: 20170213
  97. VANCOMYCIN [Concomitant]
     Active Substance: VANCOMYCIN
     Indication: STAPHYLOCOCCAL INFECTION
     Dosage: UNK
     Route: 065
     Dates: start: 20170609, end: 20170619
  98. CETIRIZINE [Concomitant]
     Active Substance: CETIRIZINE HYDROCHLORIDE
     Indication: INFECTIVE PULMONARY EXACERBATION OF CYSTIC FIBROSIS
     Dosage: UNK
     Route: 065
     Dates: start: 20180722, end: 20180727
  99. MULTI VITAMIN [Concomitant]
     Active Substance: VITAMINS
     Indication: NUTRITIONAL SUPPLEMENTATION
     Dosage: UNK
     Route: 065
     Dates: start: 20180611
  100. TOBI PODHALER [Suspect]
     Active Substance: TOBRAMYCIN
     Dosage: 300 MG, QD
     Route: 055
     Dates: start: 20170301, end: 20170327
  101. TOBI [Suspect]
     Active Substance: TOBRAMYCIN
     Dosage: 300 OT, BID
     Route: 055
     Dates: start: 20161209, end: 20170108
  102. CAYSTON [Suspect]
     Active Substance: AZTREONAM
     Dosage: 75 MG, TID
     Route: 055
     Dates: start: 20160307, end: 20160331
  103. CAYSTON [Suspect]
     Active Substance: AZTREONAM
     Dosage: 75 MG, TID
     Route: 055
     Dates: start: 201701
  104. ALBUTEROL. [Concomitant]
     Active Substance: ALBUTEROL
     Dosage: UNK
     Route: 065
     Dates: start: 20180722, end: 20180727
  105. OMEPRAZOLE. [Concomitant]
     Active Substance: OMEPRAZOLE
     Dosage: 40 MG, BID
     Route: 048
     Dates: start: 20171005
  106. FISH OIL [Concomitant]
     Active Substance: FISH OIL
     Indication: NUTRITIONAL SUPPLEMENTATION
     Dosage: UNK
     Route: 065
     Dates: start: 20160112, end: 20160205
  107. PULMOZYME [Concomitant]
     Active Substance: DORNASE ALFA
     Indication: CYSTIC FIBROSIS LUNG
     Dosage: UNK
     Route: 065
     Dates: start: 20160707, end: 20171006
  108. FLUTICASONE. [Concomitant]
     Active Substance: FLUTICASONE
     Indication: CHRONIC SINUSITIS
     Dosage: UNK
     Route: 065
     Dates: start: 20140101
  109. MULTIVITAMIN [Concomitant]
     Active Substance: VITAMINS
     Dosage: UNK
     Route: 065
     Dates: start: 20181026, end: 20181102
  110. SODIUM CHLORIDE. [Concomitant]
     Active Substance: SODIUM CHLORIDE
     Dosage: 0.9 %, UNK
     Route: 065
     Dates: start: 20161129, end: 20161208
  111. SODIUM CHLORIDE. [Concomitant]
     Active Substance: SODIUM CHLORIDE
     Dosage: 0.9 %, UNK
     Route: 065
     Dates: start: 20170702, end: 20170720
  112. ULTRAM [Concomitant]
     Active Substance: TRAMADOL HYDROCHLORIDE
     Indication: FIBROMYALGIA
     Dosage: UNK
     Route: 065
     Dates: start: 20130101
  113. COLACE [Concomitant]
     Active Substance: DOCUSATE SODIUM
     Indication: FAECES HARD
     Dosage: UNK
     Route: 065
     Dates: start: 20160531, end: 20160604
  114. CODEINE [Concomitant]
     Active Substance: CODEINE
     Indication: PAIN
     Dosage: UNK
     Route: 065
     Dates: start: 20160531, end: 20160603
  115. LIDOCAINE. [Concomitant]
     Active Substance: LIDOCAINE
     Dosage: 4 %, UNK
     Route: 065
     Dates: start: 20160619, end: 20160619
  116. VERSED [Concomitant]
     Active Substance: MIDAZOLAM HYDROCHLORIDE
     Indication: ANXIETY
     Dosage: UNK
     Route: 065
     Dates: start: 20160601, end: 20160601
  117. FLEXERIL [Concomitant]
     Active Substance: CYCLOBENZAPRINE HYDROCHLORIDE
     Dosage: UNK
     Route: 065
     Dates: start: 20171121, end: 20171204
  118. MORPHINE [Concomitant]
     Active Substance: MORPHINE
     Indication: PAIN
     Dosage: UNK
     Route: 065
     Dates: start: 20160619, end: 20160619
  119. NEBCIN [Concomitant]
     Active Substance: TOBRAMYCIN SULFATE
     Dosage: UNK
     Route: 065
     Dates: start: 20161028, end: 20161102
  120. NEBCIN [Concomitant]
     Active Substance: TOBRAMYCIN SULFATE
     Dosage: UNK
     Route: 065
     Dates: start: 20161129, end: 20161208
  121. NEBCIN [Concomitant]
     Active Substance: TOBRAMYCIN SULFATE
     Dosage: UNK
     Route: 065
     Dates: start: 20180530, end: 20180530
  122. LACTOBACILLUS RHAMNOSUS [Concomitant]
     Active Substance: LACTOBACILLUS RHAMNOSUS
     Dosage: UNK
     Route: 065
     Dates: start: 20170702, end: 20170720
  123. LIDODERM [Concomitant]
     Active Substance: LIDOCAINE
     Indication: PAIN IN EXTREMITY
     Dosage: UNK
     Route: 065
     Dates: start: 20161130, end: 20161208
  124. ZOFRAN [Concomitant]
     Active Substance: ONDANSETRON HYDROCHLORIDE
     Dosage: UNK
     Route: 065
     Dates: start: 20170706, end: 20170720
  125. ZOFRAN [Concomitant]
     Active Substance: ONDANSETRON HYDROCHLORIDE
     Dosage: UNK
     Route: 065
     Dates: start: 20180223, end: 20180228
  126. IMITREX [Concomitant]
     Active Substance: SUMATRIPTAN SUCCINATE
     Indication: MIGRAINE
     Dosage: UNK
     Route: 065
     Dates: start: 20170704, end: 20170720
  127. CETIRIZINE [Concomitant]
     Active Substance: CETIRIZINE HYDROCHLORIDE
     Indication: SEASONAL ALLERGY
     Dosage: UNK
     Route: 065
     Dates: start: 20170702
  128. TOBI PODHALER [Suspect]
     Active Substance: TOBRAMYCIN
     Dosage: 112 OT, BID
     Route: 055
     Dates: start: 20160401, end: 20160428
  129. TOBI [Suspect]
     Active Substance: TOBRAMYCIN
     Dosage: 300 OT, BID
     Route: 055
     Dates: start: 20170416, end: 20170430
  130. CAYSTON [Suspect]
     Active Substance: AZTREONAM
     Dosage: 75 MG, TID
     Route: 055
     Dates: start: 20160615, end: 20160619
  131. CAYSTON [Suspect]
     Active Substance: AZTREONAM
     Dosage: 75 OT, TID
     Route: 065
     Dates: start: 20160702, end: 20160801
  132. ALBUTEROL. [Concomitant]
     Active Substance: ALBUTEROL
     Indication: INFECTIVE PULMONARY EXACERBATION OF CYSTIC FIBROSIS
     Dosage: 2.5 MG, 4 PER DAY/PRN
     Route: 055
     Dates: start: 20171007
  133. VITAMIN D3 [Concomitant]
     Active Substance: CHOLECALCIFEROL
     Indication: VITAMIN D DEFICIENCY
     Dosage: UNK
     Route: 065
     Dates: start: 20160620, end: 20170619
  134. VITAMIN D3 [Concomitant]
     Active Substance: CHOLECALCIFEROL
     Dosage: UNK
     Route: 065
     Dates: start: 20170703, end: 20170720
  135. PULMOZYME [Concomitant]
     Active Substance: DORNASE ALFA
     Indication: BRONCHOSCOPY
     Dosage: UNK
     Route: 065
     Dates: start: 20170712, end: 20170712
  136. POLYETHYLENE GLYCOL [Concomitant]
     Active Substance: POLYETHYLENE GLYCOLS
     Indication: CONSTIPATION
     Dosage: UNK
     Route: 065
     Dates: start: 20140101, end: 20170702
  137. SODIUM CHLORIDE. [Concomitant]
     Active Substance: SODIUM CHLORIDE
     Dosage: 0.9 %, UNK
     Route: 065
     Dates: start: 20171006, end: 20171013
  138. DUONEB [Concomitant]
     Active Substance: ALBUTEROL SULFATE\IPRATROPIUM BROMIDE
     Indication: WHEEZING
     Dosage: UNK
     Route: 065
     Dates: start: 20160531, end: 20160601
  139. LIDOCAINE. [Concomitant]
     Active Substance: LIDOCAINE
     Indication: PROCEDURAL PAIN
     Dosage: 2 %, UNK
     Route: 065
     Dates: start: 20160615, end: 20160615
  140. LIDOCAINE. [Concomitant]
     Active Substance: LIDOCAINE
     Dosage: 2 %, UNK
     Route: 065
     Dates: start: 20160619, end: 20160619
  141. MERREM [Concomitant]
     Active Substance: MEROPENEM
     Dosage: UNK
     Route: 065
     Dates: start: 20181026, end: 20181102
  142. SENOKOT [Concomitant]
     Active Substance: SENNOSIDES
     Indication: CONSTIPATION
     Dosage: UNK
     Route: 065
     Dates: start: 20160531, end: 20160604
  143. FLEXERIL [Concomitant]
     Active Substance: CYCLOBENZAPRINE HYDROCHLORIDE
     Indication: PAIN
     Dosage: UNK
     Route: 065
     Dates: start: 20160619, end: 20160619
  144. PROPOFOL. [Concomitant]
     Active Substance: PROPOFOL
     Indication: SEDATION
     Dosage: UNK
     Route: 065
     Dates: start: 20160615, end: 20160616
  145. NEBCIN [Concomitant]
     Active Substance: TOBRAMYCIN SULFATE
     Indication: PSEUDOMONAS INFECTION
     Dosage: UNK
     Route: 065
     Dates: start: 20160618, end: 20160620
  146. NEILMED SINUS RINSE [Concomitant]
     Active Substance: SODIUM BICARBONATE\SODIUM CHLORIDE
     Indication: NASAL IRRIGATION
     Dosage: UNK
     Route: 065
     Dates: start: 20161028, end: 20161102
  147. AZACTAM [Concomitant]
     Active Substance: AZTREONAM
     Dosage: UNK
     Route: 065
     Dates: start: 20170609, end: 20170619
  148. CIPROFLOXACIN. [Concomitant]
     Active Substance: CIPROFLOXACIN
     Indication: BRONCHIECTASIS
     Dosage: UNK
     Route: 065
     Dates: start: 20170211, end: 20170304
  149. CIPROFLOXACIN. [Concomitant]
     Active Substance: CIPROFLOXACIN
     Dosage: UNK
     Route: 065
     Dates: start: 20180517, end: 20180531
  150. MYCELEX [Concomitant]
     Active Substance: CLOTRIMAZOLE
     Indication: ORAL CANDIDIASIS
     Dosage: UNK
     Route: 065
     Dates: start: 20171121, end: 20171204
  151. ACETAMINOPHEN. [Concomitant]
     Active Substance: ACETAMINOPHEN
     Indication: INFECTIVE PULMONARY EXACERBATION OF CYSTIC FIBROSIS
     Dosage: UNK
     Route: 065
     Dates: start: 20180722, end: 20180722
  152. TOBI PODHALER [Suspect]
     Active Substance: TOBRAMYCIN
     Indication: CYSTIC FIBROSIS LUNG
     Dosage: 300 MG, BID
     Route: 055
  153. TOBI [Suspect]
     Active Substance: TOBRAMYCIN
     Indication: PSEUDOMONAS INFECTION
     Dosage: 300 OT, BID
     Route: 055
     Dates: start: 20160620, end: 20160701
  154. TOBI [Suspect]
     Active Substance: TOBRAMYCIN
     Dosage: 300 MG, BID
     Route: 055
     Dates: start: 20171003, end: 20171004
  155. CAYSTON [Suspect]
     Active Substance: AZTREONAM
     Indication: PSEUDOMONAS INFECTION
     Dosage: UNK
     Route: 065
     Dates: start: 20150101
  156. WELLBUTRIN [Concomitant]
     Active Substance: BUPROPION HYDROCHLORIDE
     Indication: DEPRESSION
     Dosage: UNK
     Route: 065
     Dates: start: 20140101
  157. PULMOZYME [Concomitant]
     Active Substance: DORNASE ALFA
     Dosage: UNK
     Route: 065
     Dates: end: 20190109
  158. SUBLIMAZE [Concomitant]
     Active Substance: FENTANYL CITRATE
     Indication: BRONCHOSCOPY
     Dosage: UNK
     Route: 065
     Dates: start: 20160615, end: 20160619
  159. VERSED [Concomitant]
     Active Substance: MIDAZOLAM HYDROCHLORIDE
     Dosage: UNK
     Route: 065
     Dates: start: 20170712, end: 20170712
  160. FLEXERIL [Concomitant]
     Active Substance: CYCLOBENZAPRINE HYDROCHLORIDE
     Dosage: UNK
     Route: 065
     Dates: start: 20171006, end: 20171013
  161. PREVNAR [Concomitant]
     Active Substance: PNEUMOCOCCAL 7-VALENT CONJUGATE VACCINE (DIPHTHERIA CRM197 PROTEIN)
     Indication: PROPHYLAXIS
     Dosage: UNK
     Route: 065
     Dates: start: 20160619, end: 20160619
  162. PNEUMOVAX 23 [Concomitant]
     Active Substance: PNEUMOCOCCAL VACCINE, POLYVALENT 23
     Dosage: UNK
     Route: 065
     Dates: start: 20170110, end: 20170110
  163. PROMETHAZINE - CODEINE [Concomitant]
     Active Substance: CODEINE\PROMETHAZINE
     Indication: COUGH
     Dosage: UNK
     Route: 065
     Dates: start: 20160619, end: 20160619
  164. NEBCIN [Concomitant]
     Active Substance: TOBRAMYCIN SULFATE
     Dosage: UNK
     Route: 065
     Dates: start: 20160825, end: 20160902
  165. NEBCIN [Concomitant]
     Active Substance: TOBRAMYCIN SULFATE
     Dosage: UNK
     Route: 065
     Dates: start: 20171121, end: 20171121
  166. NEBCIN [Concomitant]
     Active Substance: TOBRAMYCIN SULFATE
     Dosage: UNK
     Route: 065
     Dates: start: 20180529, end: 20180529
  167. HEPARIN [Concomitant]
     Active Substance: HEPARIN SODIUM
     Indication: PRODUCT USED FOR UNKNOWN INDICATION
     Dosage: UNK
     Route: 065
     Dates: start: 20161028, end: 20161102
  168. LACTOBACILLUS RHAMNOSUS [Concomitant]
     Active Substance: LACTOBACILLUS RHAMNOSUS
     Dosage: UNK
     Route: 065
     Dates: start: 20161129, end: 20161208
  169. LACTOBACILLUS RHAMNOSUS [Concomitant]
     Active Substance: LACTOBACILLUS RHAMNOSUS
     Dosage: UNK
     Route: 065
     Dates: start: 20170327, end: 20170404
  170. LACTOBACILLUS RHAMNOSUS [Concomitant]
     Active Substance: LACTOBACILLUS RHAMNOSUS
     Dosage: UNK
     Route: 065
     Dates: start: 20170609, end: 20170619
  171. CIPROFLOXACIN. [Concomitant]
     Active Substance: CIPROFLOXACIN
     Indication: CYSTIC FIBROSIS LUNG
     Dosage: UNK
     Route: 065
     Dates: start: 20170426, end: 20170515
  172. HEPARIN PF NOVO [Concomitant]
     Indication: PRODUCT USED FOR UNKNOWN INDICATION
     Dosage: UNK
     Route: 065
     Dates: start: 20170327, end: 20170404
  173. BENADRYL [Concomitant]
     Active Substance: DIPHENHYDRAMINE HYDROCHLORIDE
     Indication: NAUSEA
     Dosage: UNK
     Route: 065
     Dates: start: 20180529, end: 20180529
  174. TOBI PODHALER [Suspect]
     Active Substance: TOBRAMYCIN
     Indication: PSEUDOMONAS INFECTION
     Dosage: UNK
     Route: 055
     Dates: start: 20160530, end: 20160531
  175. TOBI [Suspect]
     Active Substance: TOBRAMYCIN
     Indication: CYSTIC FIBROSIS
     Dosage: 300 OT, BID
     Route: 055
     Dates: start: 20160531, end: 20160604
  176. TOBI [Suspect]
     Active Substance: TOBRAMYCIN
     Dosage: 720 MG, QD
     Route: 042
     Dates: start: 20171006
  177. CAYSTON [Suspect]
     Active Substance: AZTREONAM
     Dosage: 75 MG, BID
     Route: 055
     Dates: start: 20170905, end: 20171003
  178. REGLAN [Concomitant]
     Active Substance: METOCLOPRAMIDE HYDROCHLORIDE
     Dosage: UNK
     Route: 065
     Dates: start: 20181226, end: 20190104
  179. TYLENOL [Concomitant]
     Active Substance: ACETAMINOPHEN
     Indication: PAIN
     Dosage: UNK
     Route: 065
     Dates: start: 20140905
  180. METOCLOPRAMIDE. [Concomitant]
     Active Substance: METOCLOPRAMIDE
     Indication: NAUSEA
     Dosage: UNK
     Route: 065
     Dates: start: 20180722, end: 20180727
  181. ADEKS [Concomitant]
     Indication: NUTRITIONAL SUPPLEMENTATION
     Dosage: UNK
     Route: 065
     Dates: start: 20150818, end: 20170619
  182. CREON [Concomitant]
     Active Substance: PANCRELIPASE AMYLASE\PANCRELIPASE LIPASE\PANCRELIPASE PROTEASE
     Indication: CYSTIC FIBROSIS PANCREATIC
     Dosage: UNK
     Route: 065
     Dates: start: 20140101
  183. CREON [Concomitant]
     Active Substance: PANCRELIPASE AMYLASE\PANCRELIPASE LIPASE\PANCRELIPASE PROTEASE
     Dosage: UNK
     Route: 065
     Dates: start: 20180916, end: 20180924
  184. SODIUM CHLORIDE. [Concomitant]
     Active Substance: SODIUM CHLORIDE
     Dosage: 0.9 %, UNK
     Route: 065
     Dates: start: 20170327, end: 20170404
  185. SUBLIMAZE [Concomitant]
     Active Substance: FENTANYL CITRATE
     Indication: PAIN
     Dosage: UNK
     Route: 065
     Dates: start: 20160531, end: 20160531
  186. SUBLIMAZE [Concomitant]
     Active Substance: FENTANYL CITRATE
     Dosage: UNK
     Route: 065
     Dates: start: 20170712, end: 20170712
  187. SUBLIMAZE [Concomitant]
     Active Substance: FENTANYL CITRATE
     Dosage: UNK
     Route: 065
     Dates: start: 20170717, end: 20170717
  188. MERREM [Concomitant]
     Active Substance: MEROPENEM
     Dosage: UNK
     Route: 065
     Dates: start: 20161031, end: 20161102
  189. MERREM [Concomitant]
     Active Substance: MEROPENEM
     Dosage: UNK
     Route: 065
     Dates: start: 20170330, end: 20170404
  190. MERREM [Concomitant]
     Active Substance: MEROPENEM
     Dosage: UNK
     Route: 065
     Dates: start: 20171006, end: 20171013
  191. MERREM [Concomitant]
     Active Substance: MEROPENEM
     Dosage: UNK
     Route: 065
     Dates: start: 20170501, end: 20170515
  192. MERREM [Concomitant]
     Active Substance: MEROPENEM
     Dosage: UNK
     Route: 065
     Dates: start: 20180301, end: 20180316
  193. MYCOSTATIN [Concomitant]
     Active Substance: NYSTATIN
     Dosage: UNK
     Route: 065
     Dates: start: 20161201, end: 20161208
  194. COMPAZINE [Concomitant]
     Active Substance: PROCHLORPERAZINE MALEATE
     Indication: HEADACHE
     Dosage: UNK
     Route: 065
     Dates: start: 20180529, end: 20180529
  195. ROCEPHIN [Concomitant]
     Active Substance: CEFTRIAXONE SODIUM
     Indication: PROPHYLAXIS
     Dosage: UNK
     Route: 065
     Dates: start: 20160619, end: 20160619
  196. CIPRO [Concomitant]
     Active Substance: CIPROFLOXACIN HYDROCHLORIDE
     Indication: PSEUDOMONAS INFECTION
     Dosage: UNK
     Route: 065
     Dates: start: 20160615, end: 20160618
  197. NEBCIN [Concomitant]
     Active Substance: TOBRAMYCIN SULFATE
     Dosage: UNK
     Route: 065
     Dates: start: 20170109, end: 20170118
  198. NEBCIN [Concomitant]
     Active Substance: TOBRAMYCIN SULFATE
     Dosage: UNK
     Route: 065
     Dates: start: 20180722, end: 20180727
  199. NEBCIN [Concomitant]
     Active Substance: TOBRAMYCIN SULFATE
     Dosage: UNK
     Route: 065
     Dates: start: 20180915, end: 20180924
  200. HEPARIN [Concomitant]
     Active Substance: HEPARIN SODIUM
     Dosage: UNK
     Route: 065
     Dates: start: 20161129, end: 20161208
  201. ANCEF [Concomitant]
     Active Substance: CEFAZOLIN SODIUM
     Indication: STAPHYLOCOCCAL INFECTION
     Dosage: UNK
     Route: 065
     Dates: start: 20161201, end: 20161208
  202. LIDODERM [Concomitant]
     Active Substance: LIDOCAINE
     Dosage: UNK
     Route: 065
     Dates: start: 20170109, end: 20170118
  203. HEPARIN PF NOVO [Concomitant]
     Dosage: UNK
     Route: 065
     Dates: start: 20170702, end: 20170720
  204. IMITREX [Concomitant]
     Active Substance: SUMATRIPTAN SUCCINATE
     Dosage: UNK
     Route: 065
     Dates: start: 20180223, end: 20180316
  205. PAIN EASE [Concomitant]
     Active Substance: CAMPHOR OIL\MENTHOL\METHYL SALICYLATE
     Indication: BRONCHOSCOPY
     Dosage: UNK
     Route: 065
     Dates: start: 20170712, end: 20170712
  206. SUMATRIPTAN. [Concomitant]
     Active Substance: SUMATRIPTAN
     Indication: MIGRAINE WITHOUT AURA
     Dosage: UNK
     Route: 065
     Dates: start: 20180204
  207. ACETAMINOPHEN. [Concomitant]
     Active Substance: ACETAMINOPHEN
     Dosage: UNK
     Route: 065
     Dates: start: 20181026, end: 20181102
  208. ANCEF [Concomitant]
     Active Substance: CEFAZOLIN SODIUM
     Indication: STAPHYLOCOCCAL INFECTION
     Dosage: UNK
     Route: 065
     Dates: start: 20161201, end: 20161208

REACTIONS (43)
  - Swelling [Unknown]
  - Headache [Unknown]
  - Infective pulmonary exacerbation of cystic fibrosis [Recovered/Resolved]
  - Infective pulmonary exacerbation of cystic fibrosis [Recovered/Resolved]
  - Diarrhoea [Unknown]
  - Staphylococcus test positive [Unknown]
  - Weight increased [Unknown]
  - Musculoskeletal chest pain [Unknown]
  - Haemoptysis [Recovered/Resolved]
  - Chest discomfort [Unknown]
  - Night sweats [Unknown]
  - Infective pulmonary exacerbation of cystic fibrosis [Recovered/Resolved]
  - Decreased appetite [Unknown]
  - Infective pulmonary exacerbation of cystic fibrosis [Recovered/Resolved]
  - Cough [Unknown]
  - Infective pulmonary exacerbation of cystic fibrosis [Recovered/Resolved]
  - Secretion discharge [Unknown]
  - Dyspnoea [Recovered/Resolved]
  - Haemoptysis [Recovered/Resolved]
  - Urticaria [Unknown]
  - Infective pulmonary exacerbation of cystic fibrosis [Recovered/Resolved]
  - Pruritus [Unknown]
  - Productive cough [Unknown]
  - Haemoptysis [Unknown]
  - Infective pulmonary exacerbation of cystic fibrosis [Recovered/Resolved]
  - Chest pain [Recovered/Resolved]
  - Infective pulmonary exacerbation of cystic fibrosis [Recovered/Resolved]
  - Dyspnoea [Unknown]
  - Infective pulmonary exacerbation of cystic fibrosis [Recovered/Resolved]
  - Infective pulmonary exacerbation of cystic fibrosis [Recovered/Resolved]
  - Infective pulmonary exacerbation of cystic fibrosis [Recovered/Resolved]
  - Infective pulmonary exacerbation of cystic fibrosis [Recovered/Resolved]
  - Pyrexia [Unknown]
  - Sputum increased [Unknown]
  - Infective pulmonary exacerbation of cystic fibrosis [Recovered/Resolved]
  - Asthenia [Unknown]
  - Infective pulmonary exacerbation of cystic fibrosis [Recovered/Resolved]
  - Infective pulmonary exacerbation of cystic fibrosis [Recovered/Resolved]
  - Sputum discoloured [Unknown]
  - Infective pulmonary exacerbation of cystic fibrosis [Recovered/Resolved]
  - Infective pulmonary exacerbation of cystic fibrosis [Recovered/Resolved]
  - Infective pulmonary exacerbation of cystic fibrosis [Recovered/Resolved]
  - Pseudomonas test positive [Unknown]

NARRATIVE: CASE EVENT DATE: 20160530
